FAERS Safety Report 9501586 (Version 1)
Quarter: 2013Q3

REPORT INFORMATION
  Report Type: Spontaneous
  Country: US (occurrence: US)
  Receive Date: 20130905
  Receipt Date: 20130905
  Transmission Date: 20140515
  Serious: Yes (Hospitalization)
  Sender: FDA-Public Use
  Company Number: US-INCYTE CORPORATION-2013IN001982

PATIENT
  Age: 80 Year
  Sex: Male

DRUGS (18)
  1. JAKAFI [Suspect]
     Indication: MYELOFIBROSIS
     Dosage: 10 MG, QD
     Route: 048
  2. LEVOTHYROXINE [Concomitant]
  3. METOPROLOL [Concomitant]
  4. ASPIRIN [Concomitant]
     Dosage: 325 MG
  5. DOXAZOSIN [Concomitant]
  6. CLONIDINE [Concomitant]
  7. HYDRALAZINE [Concomitant]
  8. CARBADOPA/LEVODOPA [Concomitant]
  9. GABAPENTIN [Concomitant]
  10. MIRALAX [Concomitant]
  11. MAGNESIUM OXIDE [Concomitant]
  12. CALCIUM CARBONATE [Concomitant]
  13. ALLOPURINOL [Concomitant]
  14. AMLODIPINE [Concomitant]
  15. FINASTERIDE [Concomitant]
  16. FUROSEMIDE [Concomitant]
  17. VITAMIN D [Concomitant]
  18. MULTIVITAMINS [Concomitant]

REACTIONS (1)
  - Parkinson^s disease [Unknown]
